FAERS Safety Report 10089749 (Version 1)
Quarter: 2014Q2

REPORT INFORMATION
  Report Type: Spontaneous
  Country: US (occurrence: US)
  Receive Date: 20140421
  Receipt Date: 20140421
  Transmission Date: 20141212
  Serious: No
  Sender: FDA-Public Use
  Company Number: US-PFIZER INC-2014109808

PATIENT
  Sex: Female

DRUGS (2)
  1. CHANTIX [Suspect]
     Dosage: UNK, DAILY
     Dates: start: 20140413
  2. CHANTIX [Suspect]
     Dosage: UNK, 2X/DAY
     Dates: start: 20140416

REACTIONS (1)
  - Anger [Unknown]
